FAERS Safety Report 9197915 (Version 1)
Quarter: 2013Q1

REPORT INFORMATION
  Report Type: Spontaneous
  Country: AU (occurrence: AU)
  Receive Date: 20130328
  Receipt Date: 20130328
  Transmission Date: 20140127
  Serious: Yes (Hospitalization)
  Sender: FDA-Public Use
  Company Number: AU-B.I. PHARMACEUTICALS,INC./RIDGEFIELD-2013-AU-00360AU

PATIENT
  Sex: 0

DRUGS (1)
  1. TWYNSTA [Suspect]

REACTIONS (2)
  - Haemolytic anaemia [Unknown]
  - Renal impairment [Unknown]
